FAERS Safety Report 9537265 (Version 4)
Quarter: 2013Q4

REPORT INFORMATION
  Report Type: Spontaneous
  Country: JP (occurrence: JP)
  Receive Date: 20130919
  Receipt Date: 20131031
  Transmission Date: 20140711
  Serious: Yes (Hospitalization)
  Sender: FDA-Public Use
  Company Number: JP-JNJFOC-20130908847

PATIENT
  Age: 69 Year
  Sex: Female
  Weight: 38 kg

DRUGS (9)
  1. GOLIMUMAB [Suspect]
     Indication: PRODUCT USED FOR UNKNOWN INDICATION
     Route: 058
     Dates: start: 20130805, end: 20130805
  2. GOLIMUMAB [Suspect]
     Indication: PRODUCT USED FOR UNKNOWN INDICATION
     Route: 058
     Dates: start: 20130717, end: 20130717
  3. TOCILIZUMAB [Suspect]
     Indication: PRODUCT USED FOR UNKNOWN INDICATION
     Route: 041
     Dates: start: 20080611, end: 20130713
  4. MOHRUS [Concomitant]
     Dosage: DOSE: 2 DF
     Route: 062
  5. FRANDOL TAPE (ISOSORBIDE DINITRATE) [Concomitant]
     Dosage: DOSE: 1 DF
     Route: 062
  6. LENDORMIN [Concomitant]
     Route: 048
  7. CELECOX [Concomitant]
     Route: 048
  8. PURSENNID [Concomitant]
     Route: 048
  9. ALFAROL [Concomitant]
     Route: 048

REACTIONS (1)
  - Diverticular perforation [Recovered/Resolved]
